FAERS Safety Report 14590328 (Version 3)
Quarter: 2018Q1

REPORT INFORMATION
  Report Type: Spontaneous
  Country: US (occurrence: US)
  Receive Date: 20180302
  Receipt Date: 20180326
  Transmission Date: 20180509
  Serious: No
  Sender: FDA-Public Use
  Company Number: US-PFIZER INC-2018085556

PATIENT
  Age: 56 Year
  Sex: Female
  Weight: 97.51 kg

DRUGS (16)
  1. VITAMIN D3 [Concomitant]
     Active Substance: CHOLECALCIFEROL
     Indication: BONE DISORDER
     Dosage: 2000 IU, 1X/DAY
     Route: 048
  2. SERTRALINE [Concomitant]
     Active Substance: SERTRALINE HYDROCHLORIDE
     Indication: DEPRESSION
     Dosage: UNK UNK, DAILY [100 MG TABLET. 1.5 TABLETS BY MOUTH EVERY DAY]
     Route: 048
     Dates: start: 2015
  3. TEMAZEPAM. [Concomitant]
     Active Substance: TEMAZEPAM
     Indication: SLEEP DISORDER
     Dosage: 15 MG, 1X/DAY [ONCE AT NIGHT BEFORE BED]
     Route: 048
     Dates: start: 2014
  4. LYRICA [Suspect]
     Active Substance: PREGABALIN
     Indication: SYSTEMIC LUPUS ERYTHEMATOSUS
     Dosage: 100 MG, 3X/DAY
     Route: 048
     Dates: start: 201712, end: 201802
  5. GLIPIZIDE. [Concomitant]
     Active Substance: GLIPIZIDE
     Indication: DIABETES MELLITUS
     Dosage: 2.5 MG, DAILY
     Route: 048
     Dates: start: 2015
  6. HYDROXYCHLOROQUINE [Concomitant]
     Active Substance: HYDROXYCHLOROQUINE
     Indication: SYSTEMIC LUPUS ERYTHEMATOSUS
     Dosage: 200 MG, DAILY
     Route: 048
     Dates: start: 1999
  7. TESSALON [Concomitant]
     Active Substance: BENZONATATE
     Indication: ABDOMINAL DISCOMFORT
     Dosage: 100 MG, 3X/DAY [EVERY 8 HOURS]
     Route: 048
  8. KEPPRA [Concomitant]
     Active Substance: LEVETIRACETAM
     Indication: SEIZURE
     Dosage: 1000 MG, 1X/DAY [500 MG TABLET BY MOUTH. 2 TABLETS BY MOUTH ONCE DAILY]
     Route: 048
     Dates: start: 1989
  9. ZOLOFT [Concomitant]
     Active Substance: SERTRALINE HYDROCHLORIDE
     Indication: DEPRESSION
     Dosage: 100 MG, DAILY
  10. LYRICA [Suspect]
     Active Substance: PREGABALIN
     Indication: BONE PAIN
     Dosage: 100 MG, 3X/DAY
     Route: 048
     Dates: start: 20170715, end: 20180228
  11. LYRICA [Suspect]
     Active Substance: PREGABALIN
     Indication: DIABETIC NEUROPATHY
  12. HYDRODIURIL [Concomitant]
     Active Substance: HYDROCHLOROTHIAZIDE
     Indication: BLOOD PRESSURE ABNORMAL
     Dosage: 25 MG, DAILY
     Route: 048
     Dates: start: 2014
  13. BUSPIRONE [Concomitant]
     Active Substance: BUSPIRONE HYDROCHLORIDE
     Indication: ANXIETY
     Dosage: 5 MG, 2X/DAY
     Route: 048
     Dates: start: 2015
  14. TRAZODONE [Concomitant]
     Active Substance: TRAZODONE HYDROCHLORIDE
     Indication: ANXIETY
     Dosage: 50 MG, 1X/DAY [EVERY NIGHT]
     Route: 048
     Dates: start: 2014
  15. PRAVASTATIN. [Concomitant]
     Active Substance: PRAVASTATIN
     Indication: BLOOD CHOLESTEROL
     Dosage: 40 MG, DAILY
     Route: 048
     Dates: start: 2016
  16. PLAQUENIL [Concomitant]
     Active Substance: HYDROXYCHLOROQUINE SULFATE
     Indication: SYSTEMIC LUPUS ERYTHEMATOSUS
     Dosage: 200 MG, DAILY

REACTIONS (5)
  - Dizziness [Recovered/Resolved]
  - Vertigo [Recovered/Resolved]
  - Malaise [Recovered/Resolved]
  - Fall [Recovered/Resolved]
  - Impaired driving ability [Recovered/Resolved]

NARRATIVE: CASE EVENT DATE: 20180219
